FAERS Safety Report 5966773-1 (Version None)
Quarter: 2008Q4

REPORT INFORMATION
  Report Type: 
  Country: None (occurrence: None)
  Receive Date: 20081125
  Receipt Date: 20081119
  Transmission Date: 20090506
  Serious: Yes (Other)
  Sender: FDA-Public Use
  Company Number: IT-B.I. PHARMACEUTICALS,INC./RIDGEFIELD-2008-IT-00160IT

PATIENT
  Sex: Female

DRUGS (4)
  1. MICARDIS HCT [Suspect]
     Indication: HYPERTENSION
     Dosage: 40MG
     Route: 048
     Dates: start: 20080414, end: 20080811
  2. ENAPREN [Concomitant]
  3. CARDIRENE [Concomitant]
  4. DILTIAZEM [Concomitant]

REACTIONS (1)
  - DEMENTIA [None]
